FAERS Safety Report 7861531-5 (Version None)
Quarter: 2011Q4

REPORT INFORMATION
  Report Type: 
  Country: None (occurrence: None)
  Receive Date: 20111026
  Receipt Date: 20111019
  Transmission Date: 20120403
  Serious: Yes (Other)
  Sender: FDA-Public Use
  Company Number: 2011SP005927

PATIENT
  Age: 33 Year
  Sex: Female
  Weight: 70.3075 kg

DRUGS (10)
  1. NUVARING [Suspect]
     Indication: CONTRACEPTION
     Dates: start: 20080101, end: 20090408
  2. NUVARING [Suspect]
     Indication: MENOPAUSE
     Dates: start: 20080101, end: 20090408
  3. NUVARING [Suspect]
     Indication: DYSMENORRHOEA
     Dates: start: 20080101, end: 20090408
  4. NUVARING [Suspect]
     Indication: CONTRACEPTION
     Dates: start: 20060101
  5. NUVARING [Suspect]
     Indication: MENOPAUSE
     Dates: start: 20060101
  6. NUVARING [Suspect]
     Indication: DYSMENORRHOEA
     Dates: start: 20060101
  7. NUVARING [Suspect]
     Indication: CONTRACEPTION
     Dates: start: 20020101, end: 20040101
  8. NUVARING [Suspect]
     Indication: MENOPAUSE
     Dates: start: 20020101, end: 20040101
  9. NUVARING [Suspect]
     Indication: DYSMENORRHOEA
     Dates: start: 20020101, end: 20040101
  10. SYNTHROID [Concomitant]

REACTIONS (18)
  - DEEP VEIN THROMBOSIS [None]
  - METRORRHAGIA [None]
  - UTERINE LEIOMYOMA [None]
  - ABDOMINAL PAIN [None]
  - IRRITABLE BOWEL SYNDROME [None]
  - HAEMORRHOIDS [None]
  - NECK PAIN [None]
  - HYPERCOAGULATION [None]
  - MUSCULOSKELETAL PAIN [None]
  - MENORRHAGIA [None]
  - DYSMENORRHOEA [None]
  - PSORIASIS [None]
  - NAUSEA [None]
  - OVARIAN CYST [None]
  - TEMPERATURE INTOLERANCE [None]
  - HAEMATOCHEZIA [None]
  - BREAST DISCHARGE [None]
  - ABDOMINAL DISCOMFORT [None]
